FAERS Safety Report 6980524-3 (Version None)
Quarter: 2010Q3

REPORT INFORMATION
  Report Type: 
  Country: None (occurrence: None)
  Receive Date: 20100914
  Receipt Date: 20100907
  Transmission Date: 20110219
  Serious: Yes (Hospitalization)
  Sender: FDA-Public Use
  Company Number: PHHO2010FR12632

PATIENT
  Sex: Male

DRUGS (8)
  1. CERTICAN [Suspect]
     Indication: RENAL TRANSPLANT
     Dosage: 1.75 MG, BID
     Route: 048
     Dates: start: 20100708
  2. CERTICAN [Suspect]
     Dosage: 2.25 MG AM, 2.75 MG PM
     Route: 048
     Dates: start: 20100817, end: 20100818
  3. MYCOPHENOLIC ACID [Suspect]
     Indication: RENAL TRANSPLANT
     Dosage: 720 MG, DAILY
     Route: 048
     Dates: start: 20100322
  4. NEORAL [Suspect]
     Indication: RENAL TRANSPLANT
     Dosage: UNK
     Dates: start: 20100322, end: 20100716
  5. CORTANCYL [Concomitant]
     Dosage: UNK
     Dates: start: 20100826, end: 20100901
  6. RAMIPRIL [Concomitant]
  7. BACTRIM DS [Concomitant]
  8. AERIUS [Concomitant]

REACTIONS (2)
  - PLASMAPHERESIS [None]
  - RENAL FAILURE ACUTE [None]
